FAERS Safety Report 17855729 (Version 1)
Quarter: 2020Q2

REPORT INFORMATION
  Report Type: Spontaneous
  Country: NL (occurrence: NL)
  Receive Date: 20200603
  Receipt Date: 20200603
  Transmission Date: 20200714
  Serious: Yes (Other)
  Sender: FDA-Public Use
  Company Number: NL-SUN PHARMACEUTICAL INDUSTRIES LTD-2020RR-249124

PATIENT
  Age: 66 Year
  Sex: Female
  Weight: 66 kg

DRUGS (4)
  1. ROSUVASTATINE SUN [Suspect]
     Active Substance: ROSUVASTATIN
     Indication: PRODUCT USED FOR UNKNOWN INDICATION
     Dosage: 1 10 MG
     Route: 065
     Dates: start: 2020
  2. SEVIKAR (OLMESARTAN/AMLODIPINE)SEVIKAR TABLET FILMOMHULD 20/ 5MGOLM... [Concomitant]
     Indication: PRODUCT USED FOR UNKNOWN INDICATION
     Dosage: TABLET, 20/5 MG (MILLIGRAM) ()
     Route: 065
  3. CLOPIDROGELCLOPIDOGREL TABLET   75MG [Concomitant]
     Indication: PRODUCT USED FOR UNKNOWN INDICATION
     Dosage: 75 MG ()
     Route: 065
  4. TRIAMTEREENTRIAMTEREEN TABLET 50MG [Concomitant]
     Indication: PRODUCT USED FOR UNKNOWN INDICATION
     Dosage: TABLET, 50 MG (MILLIGRAM) ()
     Route: 065

REACTIONS (10)
  - Malaise [Unknown]
  - Therapeutic response unexpected [Unknown]
  - Heart rate increased [Not Recovered/Not Resolved]
  - Hyperhidrosis [Unknown]
  - Abdominal pain [Unknown]
  - Nausea [Unknown]
  - Tremor [Unknown]
  - Hypertension [Not Recovered/Not Resolved]
  - Dyspepsia [Unknown]
  - Fatigue [Unknown]

NARRATIVE: CASE EVENT DATE: 20200506
